FAERS Safety Report 5084869-6 (Version None)
Quarter: 2006Q3

REPORT INFORMATION
  Report Type: 
  Country: None (occurrence: None)
  Receive Date: 20060815
  Receipt Date: 20060731
  Transmission Date: 20061208
  Serious: Yes (Hospitalization)
  Sender: FDA-Public Use
  Company Number: PAR_0725_2006

PATIENT
  Age: 64 Year
  Sex: Female

DRUGS (1)
  1. IBUPROFEN [Suspect]
     Dates: start: 20060615

REACTIONS (1)
  - ANGIONEUROTIC OEDEMA [None]
